FAERS Safety Report 25292582 (Version 1)
Quarter: 2025Q2

REPORT INFORMATION
  Report Type: Spontaneous
  Country: US (occurrence: US)
  Receive Date: 20250510
  Receipt Date: 20250510
  Transmission Date: 20250717
  Serious: No
  Sender: SANOFI AVENTIS
  Company Number: US-SA-2025SA127874

PATIENT
  Sex: Female
  Weight: 90.91 kg

DRUGS (6)
  1. DUPIXENT [Suspect]
     Active Substance: DUPILUMAB
     Dosage: 300 MG, QOW
     Route: 058
  2. MELOXICAM [Concomitant]
     Active Substance: MELOXICAM
  3. DULOXETINE [Concomitant]
     Active Substance: DULOXETINE
  4. MODAFINIL [Concomitant]
     Active Substance: MODAFINIL
  5. ONDANSETRON [Concomitant]
     Active Substance: ONDANSETRON
  6. CLONAZEPAM [Concomitant]
     Active Substance: CLONAZEPAM

REACTIONS (1)
  - Pyrexia [Unknown]
